FAERS Safety Report 10023836 (Version 2)
Quarter: 2014Q1

REPORT INFORMATION
  Report Type: Report from Study
  Country: JP (occurrence: JP)
  Receive Date: 20140320
  Receipt Date: 20140320
  Transmission Date: 20141002
  Serious: No
  Sender: FDA-Public Use
  Company Number: PHHY2012JP119992

PATIENT
  Age: 5 Year
  Sex: Female

DRUGS (1)
  1. ACZ885 [Suspect]
     Indication: CHRONIC INFANTILE NEUROLOGICAL CUTANEOUS AND ARTICULAR SYNDROME
     Dosage: 150 MG, UNK
     Route: 051
     Dates: start: 20091125, end: 20131217

REACTIONS (8)
  - Abdominal discomfort [Recovering/Resolving]
  - Upper respiratory tract infection [Recovering/Resolving]
  - Bronchitis [Recovering/Resolving]
  - Eyelid oedema [Recovering/Resolving]
  - Otitis media acute [Recovering/Resolving]
  - Miliaria [Recovering/Resolving]
  - Stomatitis [Recovering/Resolving]
  - Pharyngitis [Recovering/Resolving]
